FAERS Safety Report 8885058 (Version 1)
Quarter: 2012Q4

REPORT INFORMATION
  Report Type: 
  Country: US (occurrence: US)
  Receive Date: 20121102
  Receipt Date: 20121102
  Transmission Date: 20130627
  Serious: No
  Sender: FDA-Public Use
  Company Number: US-PFIZER INC-2012267982

PATIENT
  Age: 67 Year
  Sex: Female

DRUGS (10)
  1. VOLTAREN [Suspect]
     Dosage: 4 g, 4x/day
     Route: 065
     Dates: start: 2010
  2. SYNTHROID [Concomitant]
     Indication: HYPOTHYROIDISM
     Dosage: 100 ug, UNK
  3. METFORMIN [Concomitant]
     Indication: DIABETES
     Dosage: 500 mg, 2x/day
  4. GLYBURIDE [Concomitant]
     Dosage: 6 mg in morning and 3 mg in evening
  5. ENALAPRIL [Concomitant]
     Dosage: 20 mg daily
  6. LIPITOR [Concomitant]
     Dosage: 10 mg daily
  7. GABAPENTIN [Concomitant]
     Indication: PAIN ANKLE
     Dosage: 300 mg in the morning and 600 mg at nights
  8. FLECTOR [Suspect]
     Indication: OSTEOARTHRITIS
     Dosage: UNK
     Route: 065
     Dates: start: 20120713
  9. FLECTOR [Suspect]
     Indication: NEUROPATHY
  10. FLECTOR [Suspect]
     Indication: ELECTRIC SHOCK SENSATION

REACTIONS (1)
  - Drug ineffective for unapproved indication [Unknown]
